FAERS Safety Report 8630480 (Version 4)
Quarter: 2013Q4

REPORT INFORMATION
  Report Type: Spontaneous
  Country: BR (occurrence: BR)
  Receive Date: 20120622
  Receipt Date: 20131024
  Transmission Date: 20140711
  Serious: Yes (Other)
  Sender: FDA-Public Use
  Company Number: BR-ROCHE-1080673

PATIENT
  Sex: Female
  Weight: 52 kg

DRUGS (3)
  1. BONVIVA [Suspect]
     Indication: OSTEOPOROSIS
     Route: 048
     Dates: end: 201304
  2. LUMIGAN [Concomitant]
     Route: 065
  3. COSOPT [Concomitant]
     Route: 065

REACTIONS (6)
  - Glaucoma [Recovered/Resolved with Sequelae]
  - Eye haemorrhage [Not Recovered/Not Resolved]
  - Visual acuity reduced [Not Recovered/Not Resolved]
  - Musculoskeletal pain [Recovered/Resolved]
  - Eye haemorrhage [Recovered/Resolved]
  - Scleral cyst [Not Recovered/Not Resolved]
